FAERS Safety Report 16877229 (Version 1)
Quarter: 2019Q4

REPORT INFORMATION
  Report Type: Spontaneous
  Country: US (occurrence: US)
  Receive Date: 20191002
  Receipt Date: 20191002
  Transmission Date: 20200122
  Serious: No
  Sender: FDA-Public Use
  Company Number: US-TEVA-2019-US-1116618

PATIENT
  Sex: Female

DRUGS (1)
  1. AJOVY [Suspect]
     Active Substance: FREMANEZUMAB-VFRM
     Indication: PRODUCT USED FOR UNKNOWN INDICATION
     Dosage: BEGAN ABOUT 4 MONTHS AGO
     Route: 065
     Dates: start: 2019, end: 2019

REACTIONS (4)
  - Mood swings [Unknown]
  - Anger [Unknown]
  - Abnormal behaviour [Unknown]
  - Aggression [Unknown]

NARRATIVE: CASE EVENT DATE: 2019
